FAERS Safety Report 9748105 (Version 2)
Quarter: 2014Q1

REPORT INFORMATION
  Report Type: Spontaneous
  Country: US (occurrence: US)
  Receive Date: 20131212
  Receipt Date: 20140110
  Transmission Date: 20141002
  Serious: Yes (Hospitalization, Other)
  Sender: FDA-Public Use
  Company Number: US-PFIZER INC-2013353386

PATIENT
  Age: 65 Year
  Sex: Female
  Weight: 76.19 kg

DRUGS (1)
  1. VORICONAZOLE [Suspect]
     Indication: ASPERGILLUS INFECTION
     Dosage: 300 MG, 2X/DAY

REACTIONS (2)
  - Thrombocytopenia [Unknown]
  - Sepsis [Unknown]
